FAERS Safety Report 25220647 (Version 1)
Quarter: 2025Q2

REPORT INFORMATION
  Report Type: Spontaneous
  Country: US (occurrence: None)
  Receive Date: 20250420
  Receipt Date: 20250420
  Transmission Date: 20250716
  Serious: No
  Sender: FDA-CTU
  Company Number: None

PATIENT
  Age: 42 Year
  Sex: Female
  Weight: 49.5 kg

DRUGS (1)
  1. SALICYLIC ACID [Suspect]
     Active Substance: SALICYLIC ACID
     Indication: Skin papilloma
     Dosage: DAILY TOPICAL
     Route: 061
     Dates: start: 20250404, end: 20250405

REACTIONS (5)
  - Scar [None]
  - Drug ineffective [None]
  - Emotional distress [None]
  - Emotional distress [None]
  - Product label issue [None]

NARRATIVE: CASE EVENT DATE: 20250404
